FAERS Safety Report 13176414 (Version 4)
Quarter: 2018Q2

REPORT INFORMATION
  Report Type: Spontaneous
  Country: US (occurrence: US)
  Receive Date: 20170201
  Receipt Date: 20180501
  Transmission Date: 20180711
  Serious: Yes (Other)
  Sender: FDA-Public Use
  Company Number: US-SAOL THERAPEUTICS-2017SAO00169

PATIENT
  Age: 50 Year
  Sex: Female

DRUGS (7)
  1. BACLOFEN. [Concomitant]
     Active Substance: BACLOFEN
     Dosage: UNK UNK, \DAY
     Route: 048
  2. COMPOUNDED BACLOFEN [Suspect]
     Active Substance: BACLOFEN
     Dosage: UNK
  3. LIORESAL [Suspect]
     Active Substance: BACLOFEN
     Indication: MUSCLE SPASTICITY
     Dosage: 99.9 ?G, \DAY
     Route: 037
  4. COMPOUNDED BACLOFEN [Suspect]
     Active Substance: BACLOFEN
     Dosage: 270 ?G, \DAY
     Route: 037
  5. BACLOFEN. [Suspect]
     Active Substance: BACLOFEN
     Dosage: 292.74 ?G, \DAY
     Route: 037
  6. LIORESAL [Suspect]
     Active Substance: BACLOFEN
     Indication: SPINAL CORD INJURY
  7. BUPIVACAINE. [Suspect]
     Active Substance: BUPIVACAINE
     Dosage: 3.25 MG, \DAY
     Route: 037

REACTIONS (14)
  - Drug dose omission [Unknown]
  - Nerve compression [Unknown]
  - Pain [Unknown]
  - Muscle tightness [Recovering/Resolving]
  - Hypoaesthesia [Unknown]
  - Overdose [Unknown]
  - Complication associated with device [Unknown]
  - Muscle spasms [None]
  - Gait disturbance [Unknown]
  - Muscle spasticity [Recovering/Resolving]
  - Paraesthesia [Unknown]
  - Device alarm issue [Unknown]
  - Limb discomfort [Unknown]
  - Pruritus [Unknown]

NARRATIVE: CASE EVENT DATE: 201507
